FAERS Safety Report 9258164 (Version 1)
Quarter: 2013Q2

REPORT INFORMATION
  Report Type: Report from Study
  Country: AZ (occurrence: AZ)
  Receive Date: 20130426
  Receipt Date: 20130426
  Transmission Date: 20140414
  Serious: Yes (Death)
  Sender: FDA-Public Use
  Company Number: PHHY2013AZ034977

PATIENT
  Sex: Female

DRUGS (3)
  1. GLIVEC [Suspect]
     Indication: CHRONIC MYELOID LEUKAEMIA
     Dosage: 800 MG
     Route: 048
  2. GLIVEC [Suspect]
     Dosage: UNK UKN, UNK
     Route: 048
  3. GLIVEC [Suspect]
     Dosage: UNK UKN, UNK
     Route: 048

REACTIONS (3)
  - Cardiovascular insufficiency [Fatal]
  - Blast crisis in myelogenous leukaemia [Fatal]
  - Drug resistance [Unknown]
